FAERS Safety Report 8616746-5 (Version None)
Quarter: 2012Q3

REPORT INFORMATION
  Report Type: 
  Country: None (occurrence: None)
  Receive Date: 20120823
  Receipt Date: 20120803
  Transmission Date: 20120928
  Serious: No
  Sender: FDA-Public Use
  Company Number: US-009507513-1208USA003007

PATIENT

DRUGS (3)
  1. VICTRELIS [Suspect]
     Indication: HEPATITIS C
     Dosage: 200 MG, TID
     Route: 048
  2. PEGASYS [Suspect]
  3. RIBASPHERE [Suspect]

REACTIONS (2)
  - MENTAL DISORDER [None]
  - DEPRESSION [None]
